FAERS Safety Report 5191948-1 (Version None)
Quarter: 2006Q4

REPORT INFORMATION
  Report Type: 
  Country: None (occurrence: None)
  Receive Date: 20061227
  Receipt Date: 20061201
  Transmission Date: 20070319
  Serious: Yes (Hospitalization)
  Sender: FDA-Public Use
  Company Number: US-AMGEN-US202188

PATIENT
  Sex: Female
  Weight: 81.3 kg

DRUGS (20)
  1. ENBREL [Suspect]
     Indication: RHEUMATOID ARTHRITIS
     Route: 058
     Dates: start: 20051109
  2. PREDNISONE TAB [Suspect]
     Route: 065
     Dates: start: 20050705
  3. ATENOLOL [Concomitant]
     Route: 065
  4. METHYLCHLORTHIAZIDE [Concomitant]
     Route: 065
  5. K-DUR 10 [Concomitant]
     Route: 065
  6. ACTONEL [Concomitant]
     Route: 065
  7. CALCIUM WITH VITAMIN D [Concomitant]
     Route: 065
  8. RANITIDINE [Concomitant]
     Route: 065
  9. EFFEXOR [Concomitant]
     Route: 065
  10. METHADONE HCL [Concomitant]
     Route: 065
  11. PERCOCET [Concomitant]
     Route: 065
  12. ALLOPURINOL [Concomitant]
     Route: 065
  13. ALBUTEROL [Concomitant]
     Route: 055
  14. METHOTREXATE [Concomitant]
     Route: 048
  15. PREMARIN [Concomitant]
     Route: 048
  16. FOLIC ACID [Concomitant]
     Route: 065
  17. LASIX [Concomitant]
     Route: 048
  18. ADVAIR DISKUS 100/50 [Concomitant]
     Route: 055
  19. ACIPHEX [Concomitant]
     Route: 065
  20. AMBIEN [Concomitant]

REACTIONS (6)
  - ACUTE PRERENAL FAILURE [None]
  - FOOT FRACTURE [None]
  - MICROSPORUM INFECTION [None]
  - SINUSITIS [None]
  - STOMATITIS [None]
  - TENDON RUPTURE [None]
